FAERS Safety Report 18644092 (Version 1)
Quarter: 2020Q4

REPORT INFORMATION
  Report Type: Spontaneous
  Country: US (occurrence: US)
  Receive Date: 20201221
  Receipt Date: 20201221
  Transmission Date: 20210114
  Serious: Yes (Hospitalization, Other)
  Sender: FDA-Public Use
  Company Number: US-PURDUE-USA-2020-0170990

PATIENT
  Sex: Female

DRUGS (2)
  1. OXYCONTIN [Suspect]
     Active Substance: OXYCODONE HYDROCHLORIDE
     Indication: PRODUCT USED FOR UNKNOWN INDICATION
     Dosage: UNK
     Route: 048
     Dates: start: 201508, end: 201712
  2. HYDROMORPHONE TABLET (RHODES) [Suspect]
     Active Substance: HYDROMORPHONE
     Indication: PRODUCT USED FOR UNKNOWN INDICATION
     Dosage: UNK
     Route: 048

REACTIONS (11)
  - Brain injury [Unknown]
  - Overdose [Unknown]
  - Weight decreased [Unknown]
  - Eating disorder [Unknown]
  - Fall [Unknown]
  - Drug dependence [Unknown]
  - Dysphagia [Unknown]
  - Coordination abnormal [Unknown]
  - Encephalopathy [Unknown]
  - Pain [Unknown]
  - Language disorder [Unknown]
